FAERS Safety Report 11001633 (Version 5)
Quarter: 2015Q4

REPORT INFORMATION
  Report Type: Report from Study
  Country: DE (occurrence: DE)
  Receive Date: 20150408
  Receipt Date: 20151104
  Transmission Date: 20160304
  Serious: Yes (Hospitalization)
  Sender: FDA-Public Use
  Company Number: DE-PFIZER INC-2015095921

PATIENT
  Age: 45 Year
  Sex: Male

DRUGS (3)
  1. BOSUTINIB [Suspect]
     Active Substance: BOSUTINIB
     Indication: CHRONIC MYELOID LEUKAEMIA
     Dosage: 400 MG, 1X/DAY
     Route: 048
     Dates: start: 20150218, end: 20150304
  2. PARACODIN [Concomitant]
     Active Substance: DIHYDROCODEINE BITARTRATE
     Dosage: 1 DF, AS NEEDED
     Route: 048
     Dates: start: 20140101
  3. ALLOPURINOL. [Concomitant]
     Active Substance: ALLOPURINOL
     Indication: BLOOD BILIRUBIN INCREASED
     Dosage: 300 MG, DAILY
     Route: 048
     Dates: start: 20150205

REACTIONS (1)
  - Gastroenteritis [Recovered/Resolved]

NARRATIVE: CASE EVENT DATE: 20150302
